FAERS Safety Report 10565521 (Version 1)
Quarter: 2014Q4

REPORT INFORMATION
  Report Type: Spontaneous
  Country: US (occurrence: None)
  Receive Date: 20141103
  Receipt Date: 20141103
  Transmission Date: 20150529
  Serious: Yes (Other)
  Sender: FDA-Public Use
  Company Number: 2014-US-013977

PATIENT
  Sex: Female

DRUGS (2)
  1. BEE POLLEN [Suspect]
     Active Substance: BEE POLLEN
     Indication: PRODUCT USED FOR UNKNOWN INDICATION
  2. XYREM [Suspect]
     Active Substance: SODIUM OXYBATE
     Indication: FIBROMYALGIA
     Route: 048
     Dates: start: 201001, end: 2010

REACTIONS (2)
  - Anaphylactic shock [None]
  - Off label use [None]

NARRATIVE: CASE EVENT DATE: 2014
